FAERS Safety Report 13277319 (Version 1)
Quarter: 2017Q1

REPORT INFORMATION
  Report Type: Spontaneous
  Country: JP (occurrence: JP)
  Receive Date: 20170228
  Receipt Date: 20170228
  Transmission Date: 20170428
  Serious: Yes (Other)
  Sender: FDA-Public Use
  Company Number: JP-PFIZER INC-2017078894

PATIENT
  Sex: Female

DRUGS (1)
  1. CABASER [Suspect]
     Active Substance: CABERGOLINE
     Indication: GALACTOSTASIS
     Dosage: UNK, SINGLE
     Route: 048
     Dates: start: 20170212, end: 20170212

REACTIONS (1)
  - Abortion spontaneous [Unknown]
